FAERS Safety Report 13544510 (Version 1)
Quarter: 2017Q2

REPORT INFORMATION
  Report Type: Spontaneous
  Country: US (occurrence: US)
  Receive Date: 20170515
  Receipt Date: 20170515
  Transmission Date: 20170830
  Serious: Yes (Other)
  Sender: FDA-Public Use
  Company Number: US-BAYER-2017-084334

PATIENT
  Age: 67 Year
  Sex: Male

DRUGS (3)
  1. ACETYLSALICYLIC ACID({=100 MG) [Suspect]
     Active Substance: ASPIRIN
     Indication: ANTICOAGULANT THERAPY
     Dosage: UNK
  2. CLOPIDOGREL [Interacting]
     Active Substance: CLOPIDOGREL BISULFATE
     Indication: ANTICOAGULANT THERAPY
     Dosage: UNK
  3. HEPARIN [Interacting]
     Active Substance: HEPARIN SODIUM
     Indication: ANTICOAGULANT THERAPY
     Dosage: UNK

REACTIONS (11)
  - Arterial haemorrhage [None]
  - Acute kidney injury [None]
  - Acute pulmonary oedema [None]
  - Muscle haemorrhage [None]
  - Drug administration error [None]
  - Retroperitoneal haemorrhage [None]
  - Shock haemorrhagic [None]
  - Acute myocardial infarction [None]
  - Acute respiratory failure [None]
  - Atrial flutter [None]
  - Labelled drug-drug interaction medication error [None]
